FAERS Safety Report 10626809 (Version 2)
Quarter: 2015Q1

REPORT INFORMATION
  Report Type: Spontaneous
  Country: US (occurrence: US)
  Receive Date: 20141204
  Receipt Date: 20150106
  Transmission Date: 20150720
  Serious: No
  Sender: FDA-Public Use
  Company Number: US-009507513-1412USA001752

PATIENT
  Age: 47 Year
  Sex: Female

DRUGS (14)
  1. FOLIC ACID. [Concomitant]
     Active Substance: FOLIC ACID
  2. URSODIOL. [Concomitant]
     Active Substance: URSODIOL
  3. AMLODIPINE [Concomitant]
     Active Substance: AMLODIPINE BESYLATE
  4. PRINIVIL [Suspect]
     Active Substance: LISINOPRIL
     Indication: PROTEINURIA
     Dosage: UNK
     Route: 048
  5. ALEMTUZUMAB [Concomitant]
     Active Substance: ALEMTUZUMAB
     Dosage: 1 MG/KG DIVIDED OVER 5 DAYS
  6. ACYCLOVIR. [Concomitant]
     Active Substance: ACYCLOVIR
  7. NYSTATIN. [Concomitant]
     Active Substance: NYSTATIN
  8. VANCOMYCIN [Concomitant]
     Active Substance: VANCOMYCIN
  9. FENOFIBRATE. [Concomitant]
     Active Substance: FENOFIBRATE
  10. SIROLIMUS. [Interacting]
     Active Substance: SIROLIMUS
     Indication: PROPHYLAXIS
  11. PENICILLIN (UNSPECIFIED) [Concomitant]
     Active Substance: PENICILLIN
  12. CHOLECALCIFEROL [Concomitant]
     Active Substance: CHOLECALCIFEROL
  13. CLONIDINE. [Concomitant]
     Active Substance: CLONIDINE
     Dosage: PATCH
  14. TRIAMCINOLONE BENETONIDE [Concomitant]
     Dosage: 300 CGY

REACTIONS (2)
  - Drug interaction [Unknown]
  - Angioedema [Recovered/Resolved]
